FAERS Safety Report 9156380 (Version 3)
Quarter: 2013Q1

REPORT INFORMATION
  Report Type: Spontaneous
  Country: GB (occurrence: None)
  Receive Date: 20130204
  Receipt Date: 20130307
  Transmission Date: 20140127
  Serious: Yes (Other)
  Sender: FDA-Public Use
  Company Number: AUR-APL-2013-01041

PATIENT
  Age: 31 Year
  Sex: Male

DRUGS (6)
  1. LEVETIRACETAM (LEVETIRACETAM) [Suspect]
     Indication: EPILEPSY
     Route: 048
     Dates: start: 2009
  2. VALPROATE SODIUM (VALPROATE SODIUM) [Suspect]
     Indication: AFFECTIVE DISORDER
     Dosage: 1600 MG (800 MG, 2 IN 1 D), ORAL
     Route: 048
     Dates: start: 2009
  3. CLOZARIL (CLOZAPINE) [Suspect]
     Indication: SCHIZOPHRENIA
     Route: 048
     Dates: start: 2009, end: 20121123
  4. FYBOGEL (PLANTAGO OVATA) [Concomitant]
  5. LANSOPRAZOLE (LANSOPRAZOLE) [Concomitant]
  6. SIMVASTATIN (SIMVASTATIN) [Concomitant]

REACTIONS (7)
  - White blood cell count decreased [None]
  - Epilepsy [None]
  - Haemoglobin decreased [None]
  - Hyperpyrexia [None]
  - Affective disorder [None]
  - Anaemia [None]
  - Neutrophil count decreased [None]
